FAERS Safety Report 13824383 (Version 2)
Quarter: 2017Q4

REPORT INFORMATION
  Report Type: Spontaneous
  Country: CA (occurrence: CA)
  Receive Date: 20170802
  Receipt Date: 20171006
  Transmission Date: 20180320
  Serious: Yes (Other)
  Sender: FDA-Public Use
  Company Number: CA-GILEAD-2017-0286331

PATIENT
  Age: 80 Year
  Sex: Male

DRUGS (1)
  1. AMBRISENTAN [Suspect]
     Active Substance: AMBRISENTAN
     Indication: PULMONARY HYPERTENSION
     Dosage: 5 MG, UNK
     Route: 065
     Dates: start: 20170504, end: 201705

REACTIONS (8)
  - Blood pressure increased [Recovered/Resolved]
  - Dermatitis contact [Unknown]
  - Rash pruritic [Recovered/Resolved]
  - Rash [Unknown]
  - Acne [Recovered/Resolved]
  - Skin ulcer [Recovered/Resolved]
  - Cough [Recovering/Resolving]
  - Peripheral swelling [Not Recovered/Not Resolved]

NARRATIVE: CASE EVENT DATE: 20170520
